FAERS Safety Report 19459990 (Version 1)
Quarter: 2021Q2

REPORT INFORMATION
  Report Type: Spontaneous
  Country: US (occurrence: US)
  Receive Date: 20210625
  Receipt Date: 20210625
  Transmission Date: 20210717
  Serious: No
  Sender: FDA-Public Use
  Company Number: US-ASTRAZENECA-2021A490216

PATIENT
  Age: 1045 Month
  Sex: Male
  Weight: 79.8 kg

DRUGS (10)
  1. ISOSORBIDE. [Concomitant]
     Active Substance: ISOSORBIDE
  2. BRILINTA [Suspect]
     Active Substance: TICAGRELOR
     Indication: MYOCARDIAL INFARCTION
     Route: 048
     Dates: start: 202010
  3. GLIPIZIDE. [Concomitant]
     Active Substance: GLIPIZIDE
     Indication: DIABETES MELLITUS
  4. ASPIRIN. [Concomitant]
     Active Substance: ASPIRIN
  5. BRILINTA [Suspect]
     Active Substance: TICAGRELOR
     Indication: STENT PLACEMENT
     Route: 048
     Dates: start: 202010
  6. LOVASTATIN. [Concomitant]
     Active Substance: LOVASTATIN
  7. IRON SUPPLEMENT [Concomitant]
     Active Substance: IRON
  8. LOSARTAN. [Concomitant]
     Active Substance: LOSARTAN
  9. NITROGLYCERINE [Concomitant]
     Active Substance: NITROGLYCERIN
  10. CARVEDILOL. [Concomitant]
     Active Substance: CARVEDILOL

REACTIONS (2)
  - Dyspnoea [Not Recovered/Not Resolved]
  - Weight fluctuation [Unknown]

NARRATIVE: CASE EVENT DATE: 202010
